FAERS Safety Report 5476724-4 (Version None)
Quarter: 2007Q4

REPORT INFORMATION
  Report Type: 
  Country: None (occurrence: None)
  Receive Date: 20071002
  Receipt Date: 20071002
  Transmission Date: 20080405
  Serious: No
  Sender: FDA-Public Use
  Company Number: None

PATIENT
  Age: 60 Year
  Sex: Female
  Weight: 117.028 kg

DRUGS (1)
  1. MICONAZOLE [Suspect]
     Indication: FUNGAL INFECTION
     Dosage: THERE WERE 3 DOSE''S ONCE A NIGHT VAG
     Route: 067
     Dates: start: 20070127, end: 20070127

REACTIONS (4)
  - APPLICATION SITE IRRITATION [None]
  - APPLICATION SITE PAIN [None]
  - APPLICATION SITE PRURITUS [None]
  - PHARMACEUTICAL PRODUCT COMPLAINT [None]
